APPROVED DRUG PRODUCT: CIPROFLOXACIN EXTENDED RELEASE
Active Ingredient: CIPROFLOXACIN; CIPROFLOXACIN HYDROCHLORIDE
Strength: 425.2MG;EQ 574.9MG BASE
Dosage Form/Route: TABLET, EXTENDED RELEASE;ORAL
Application: A078183 | Product #002
Applicant: RISING PHARMA HOLDINGS INC
Approved: Mar 22, 2007 | RLD: No | RS: No | Type: DISCN